FAERS Safety Report 8086629-0 (Version None)
Quarter: 2012Q1

REPORT INFORMATION
  Report Type: 
  Country: None (occurrence: None)
  Receive Date: 20120128
  Receipt Date: 20110516
  Transmission Date: 20120608
  Serious: No
  Sender: FDA-Public Use
  Company Number: US-ABBOTT-11P-163-0726337-00

PATIENT
  Age: 46 Year
  Sex: Female

DRUGS (4)
  1. ALLEGRA [Concomitant]
     Indication: HYPERSENSITIVITY
     Route: 048
  2. PREMARIN [Concomitant]
     Indication: HORMONE REPLACEMENT THERAPY
     Route: 048
  3. HUMIRA [Suspect]
     Indication: PSORIASIS
     Dates: start: 20100301, end: 20110201
  4. SINGULAIR [Concomitant]
     Indication: HYPERSENSITIVITY
     Route: 048

REACTIONS (2)
  - PSORIASIS [None]
  - DRUG DOSE OMISSION [None]
